FAERS Safety Report 12507743 (Version 1)
Quarter: 2016Q2

REPORT INFORMATION
  Report Type: Spontaneous
  Country: US (occurrence: None)
  Receive Date: 20160628
  Receipt Date: 20160628
  Transmission Date: 20160815
  Serious: Yes (Hospitalization)
  Sender: FDA-Public Use
  Company Number: None

PATIENT
  Age: 17 Year
  Sex: Female
  Weight: 57.4 kg

DRUGS (5)
  1. VINCRISTINE SULFATE. [Suspect]
     Active Substance: VINCRISTINE SULFATE
     Dates: end: 20160503
  2. DOXORUBICIN HYDROCHLORIDE. [Suspect]
     Active Substance: DOXORUBICIN HYDROCHLORIDE
     Dates: end: 20160427
  3. ETOPOSIDE (VP-16) [Suspect]
     Active Substance: ETOPOSIDE
     Dates: end: 20160326
  4. CYCLOPHOSPHAMIDE. [Suspect]
     Active Substance: CYCLOPHOSPHAMIDE
     Dates: end: 20160426
  5. IFOSFAMIDE. [Suspect]
     Active Substance: IFOSFAMIDE
     Dates: end: 20160326

REACTIONS (15)
  - Implant site pain [None]
  - Back pain [None]
  - Arthralgia [None]
  - Septic shock [None]
  - Arthritis infective [None]
  - Neutropenia [None]
  - Staphylococcus test positive [None]
  - Joint effusion [None]
  - Abdominal pain [None]
  - Pyrexia [None]
  - Implant site erythema [None]
  - Blood pressure decreased [None]
  - Thrombocytopenia [None]
  - Decreased appetite [None]
  - Joint warmth [None]

NARRATIVE: CASE EVENT DATE: 20150507
